FAERS Safety Report 8193740-2 (Version None)
Quarter: 2012Q1

REPORT INFORMATION
  Report Type: 
  Country: None (occurrence: None)
  Receive Date: 20120308
  Receipt Date: 20120229
  Transmission Date: 20120608
  Serious: Yes (Other)
  Sender: FDA-Public Use
  Company Number: GB-JNJFOC-20120303008

PATIENT
  Age: 45 Year
  Sex: Female

DRUGS (2)
  1. CETIRIZINE HCL [Suspect]
     Route: 048
  2. CETIRIZINE HCL [Suspect]
     Indication: URTICARIA
     Route: 048
     Dates: start: 20120202, end: 20120202

REACTIONS (2)
  - URTICARIA [None]
  - ANGIOEDEMA [None]
